FAERS Safety Report 5012240-1 (Version None)
Quarter: 2006Q2

REPORT INFORMATION
  Report Type: 
  Country: None (occurrence: None)
  Receive Date: 20060525
  Receipt Date: 20060525
  Transmission Date: 20061013
  Serious: Yes (Disabling)
  Sender: FDA-Public Use
  Company Number: None

PATIENT
  Age: 21 Year
  Sex: Male
  Weight: 71.82 kg

DRUGS (1)
  1. METOCLOPRAMIDE [Suspect]
     Dates: start: 20051122, end: 20051219

REACTIONS (1)
  - NEUROLEPTIC MALIGNANT SYNDROME [None]
